FAERS Safety Report 8182143-2 (Version None)
Quarter: 2012Q1

REPORT INFORMATION
  Report Type: 
  Country: None (occurrence: None)
  Receive Date: 20120302
  Receipt Date: 20120220
  Transmission Date: 20120608
  Serious: Yes (Other)
  Sender: FDA-Public Use
  Company Number: DK-ELI_LILLY_AND_COMPANY-DK201108005584

PATIENT
  Sex: Male
  Weight: 86 kg

DRUGS (1)
  1. OLANZAPINE [Suspect]
     Indication: PSYCHOTIC DISORDER
     Dosage: 300 MG, UNK
     Route: 030

REACTIONS (4)
  - DYSARTHRIA [None]
  - DIZZINESS [None]
  - SOMNOLENCE [None]
  - CONFUSIONAL STATE [None]
